FAERS Safety Report 10441973 (Version 3)
Quarter: 2014Q4

REPORT INFORMATION
  Report Type: Spontaneous
  Country: CA (occurrence: CA)
  Receive Date: 20140909
  Receipt Date: 20141017
  Transmission Date: 20150528
  Serious: Yes (Death, Hospitalization, Other)
  Sender: FDA-Public Use
  Company Number: CA-GLAXOSMITHKLINE-A1088329A

PATIENT
  Age: 34 Year
  Sex: Female
  Weight: 55.7 kg

DRUGS (14)
  1. TAFINLAR [Suspect]
     Active Substance: DABRAFENIB MESYLATE
     Indication: METASTATIC NEOPLASM
     Dosage: 150 MG, BID
     Route: 048
     Dates: start: 20140821
  2. DEXTROMETHORPHAN [Concomitant]
     Active Substance: DEXTROMETHORPHAN
     Indication: COUGH
     Route: 048
  3. FENTANYL. [Concomitant]
     Active Substance: FENTANYL
     Dosage: 100 UNK, UNK
     Route: 061
  4. MAXERAN [Suspect]
     Active Substance: METOCLOPRAMIDE HYDROCHLORIDE
     Indication: PRODUCT USED FOR UNKNOWN INDICATION
     Dosage: 10 MG, QID
     Route: 048
  5. CLONAZEPAM. [Concomitant]
     Active Substance: CLONAZEPAM
     Dosage: 0.25 MG, QD
     Route: 048
  6. METOCLOPRAMIDE. [Concomitant]
     Active Substance: METOCLOPRAMIDE
     Dosage: 10 MG, QD
     Route: 048
  7. PRUCALOPRIDE [Concomitant]
     Active Substance: PRUCALOPRIDE
     Dosage: 2 MG, QD
     Route: 048
  8. DEXAMETHASONE. [Concomitant]
     Active Substance: DEXAMETHASONE
     Dosage: 8 MG, BID
     Route: 048
  9. HYDROMORPHONE [Concomitant]
     Active Substance: HYDROMORPHONE
     Indication: PAIN
     Route: 048
  10. METOPROLOL [Concomitant]
     Active Substance: METOPROLOL
     Dosage: 25 MG, BID
     Route: 048
  11. VALPROIC ACID. [Suspect]
     Active Substance: VALPROIC ACID
     Indication: SEIZURE
     Dosage: 250 MG, QID
     Route: 048
  12. NABILONE [Concomitant]
     Active Substance: NABILONE
     Route: 048
  13. PANTOPRAZOLE [Concomitant]
     Active Substance: PANTOPRAZOLE SODIUM
     Dosage: 40 MG, QD
     Route: 048
  14. NYSTATIN. [Concomitant]
     Active Substance: NYSTATIN
     Dosage: 100000 UNK, QD
     Route: 048

REACTIONS (10)
  - Nausea [Not Recovered/Not Resolved]
  - Drug ineffective [Unknown]
  - Condition aggravated [Unknown]
  - Blood calcium abnormal [Unknown]
  - Status epilepticus [Fatal]
  - Loss of consciousness [Unknown]
  - Pain [Not Recovered/Not Resolved]
  - Intracranial tumour haemorrhage [Unknown]
  - Vasogenic cerebral oedema [Unknown]
  - Seizure [Unknown]

NARRATIVE: CASE EVENT DATE: 20140826
